FAERS Safety Report 4437875-6 (Version None)
Quarter: 2004Q3

REPORT INFORMATION
  Report Type: 
  Country: None (occurrence: None)
  Receive Date: 20040827
  Receipt Date: 20040813
  Transmission Date: 20050211
  Serious: Yes (Life-Threatening, Other)
  Sender: FDA-Public Use
  Company Number: S04-UKI-03826-01

PATIENT
  Age: 27 Year
  Sex: Male

DRUGS (3)
  1. CITALOPRAM HYDROBROMIDE [Suspect]
     Dosage: 10 MG QD PO
     Route: 048
  2. CITALOPRAM HYDROBROMIDE [Suspect]
  3. OLANZAPINE [Concomitant]

REACTIONS (3)
  - ANXIETY [None]
  - HALLUCINATION [None]
  - SUICIDAL IDEATION [None]
